FAERS Safety Report 16178390 (Version 1)
Quarter: 2019Q2

REPORT INFORMATION
  Report Type: Spontaneous
  Country: US (occurrence: US)
  Receive Date: 20190410
  Receipt Date: 20190410
  Transmission Date: 20190711
  Serious: No
  Sender: FDA-Public Use
  Company Number: US-ASTRAZENECA-2019SE43563

PATIENT
  Age: 91 Year
  Sex: Male
  Weight: 77.1 kg

DRUGS (1)
  1. BEVESPI AEROSPHERE [Suspect]
     Active Substance: FORMOTEROL FUMARATE\GLYCOPYRROLATE
     Indication: RESPIRATION ABNORMAL
     Dosage: 9/4.8 MCG 1 PUFF TWO TIMES A DAY
     Route: 055
     Dates: start: 2016

REACTIONS (4)
  - Body height decreased [Unknown]
  - Off label use [Unknown]
  - Product use in unapproved indication [Unknown]
  - Confusional state [Unknown]

NARRATIVE: CASE EVENT DATE: 2016
